FAERS Safety Report 11852287 (Version 2)
Quarter: 2015Q4

REPORT INFORMATION
  Report Type: Spontaneous
  Country: US (occurrence: US)
  Receive Date: 20151218
  Receipt Date: 20151221
  Transmission Date: 20160305
  Serious: No
  Sender: FDA-Public Use
  Company Number: US-GLAXOSMITHKLINE-US2015177222

PATIENT
  Age: 65 Year
  Sex: Female

DRUGS (5)
  1. NICODERM CQ [Suspect]
     Active Substance: NICOTINE
     Indication: SMOKING CESSATION THERAPY
     Dosage: 21 MG, UNK,14CT
     Dates: start: 2015
  2. NICODERM CQ [Suspect]
     Active Substance: NICOTINE
     Indication: STRESS
  3. NICODERM CQ [Suspect]
     Active Substance: NICOTINE
     Indication: SMOKING CESSATION THERAPY
     Dosage: 14 MG, UNK
     Dates: start: 201509
  4. NICODERM CQ [Suspect]
     Active Substance: NICOTINE
     Indication: ANXIETY
  5. NICORETTE [Suspect]
     Active Substance: NICOTINE
     Indication: SMOKING CESSATION THERAPY
     Dosage: 4 MG, UNK, 81CT
     Dates: start: 2015

REACTIONS (10)
  - Muscular weakness [Recovered/Resolved]
  - Dysuria [Unknown]
  - Product use issue [Unknown]
  - Application site erythema [Not Recovered/Not Resolved]
  - Urinary tract infection [Unknown]
  - Application site pain [Not Recovered/Not Resolved]
  - Condition aggravated [Unknown]
  - Diarrhoea [Unknown]
  - Accidental exposure to product [Unknown]
  - Abdominal discomfort [Recovered/Resolved]
